FAERS Safety Report 7299648-9 (Version None)
Quarter: 2011Q1

REPORT INFORMATION
  Report Type: 
  Country: None (occurrence: None)
  Receive Date: 20110209
  Receipt Date: 20110127
  Transmission Date: 20110831
  Serious: Yes (Hospitalization)
  Sender: FDA-Public Use
  Company Number: 1000018680

PATIENT
  Age: 80 Year
  Sex: Female

DRUGS (11)
  1. LEVOTHYROX (LEVOTHYROXINE) [Concomitant]
  2. DIGOXIN [Suspect]
     Indication: CARDIAC FAILURE
     Dates: start: 20110101
  3. CARVEDILOL [Concomitant]
  4. TRANSIPEG (MACROGOL) (MACROGOL) [Concomitant]
  5. COVERSYL (PERINDOPRIL) (PERINDOPRIL) [Concomitant]
  6. COLCHIMAX (COLCHICINE) [Suspect]
     Indication: GOUT
     Dosage: 1 DOSAGE FORM (1 DOSAGE FORMS, 1 IN 1 D), ORAL
     Route: 048
     Dates: end: 20101228
  7. ESCITALOPRAM OXALATE [Suspect]
     Indication: DEPRESSION
     Dosage: 10 MG (10 MG, 1 IN 1 D), ORAL
     Route: 048
     Dates: start: 20101213, end: 20101228
  8. ADENURIC (FEBUXOSTAT) (TABLETS) (FEBUXOSTAT) [Concomitant]
  9. PREVISCAN (FLUINDIONE) (FLUINDIONE) [Suspect]
  10. DIGOXIN [Suspect]
     Indication: CARDIAC FAILURE
     Dosage: 0.125 MG (0.125 MG, 1 IN 1 D),ORAL
     Route: 048
     Dates: end: 20101228
  11. CORDARONE [Concomitant]

REACTIONS (15)
  - VOMITING [None]
  - DIARRHOEA [None]
  - WEIGHT LOSS POOR [None]
  - AFFECTIVE DISORDER [None]
  - PANCREATIC CYST [None]
  - GENERAL PHYSICAL HEALTH DETERIORATION [None]
  - LOGORRHOEA [None]
  - RENAL CYST [None]
  - ASTHENIA [None]
  - DRUG INTERACTION [None]
  - OEDEMA PERIPHERAL [None]
  - DECREASED APPETITE [None]
  - DISORIENTATION [None]
  - DEMENTIA [None]
  - PSYCHOMOTOR RETARDATION [None]
